FAERS Safety Report 15700243 (Version 1)
Quarter: 2018Q4

REPORT INFORMATION
  Report Type: Spontaneous
  Country: US (occurrence: US)
  Receive Date: 20181207
  Receipt Date: 20181207
  Transmission Date: 20190205
  Serious: No
  Sender: FDA-Public Use
  Company Number: US-PFIZER INC-2018500459

PATIENT
  Age: 57 Year
  Sex: Male

DRUGS (2)
  1. GENOTROPIN MQ [Suspect]
     Active Substance: SOMATROPIN
     Indication: GROWTH HORMONE DEFICIENCY
     Dosage: 0.4 MG, DAILY
     Dates: start: 20180811
  2. GENOTROPIN MQ [Suspect]
     Active Substance: SOMATROPIN
     Dosage: 0.2 MG, DAILY

REACTIONS (7)
  - Dehydroepiandrosterone decreased [Unknown]
  - Depression [Unknown]
  - Blood testosterone decreased [Unknown]
  - Arthralgia [Unknown]
  - Insomnia [Unknown]
  - Blood glucose increased [Unknown]
  - Blood follicle stimulating hormone increased [Unknown]
